FAERS Safety Report 7717280-7 (Version None)
Quarter: 2011Q3

REPORT INFORMATION
  Report Type: 
  Country: None (occurrence: None)
  Receive Date: 20110826
  Receipt Date: 20110826
  Transmission Date: 20111222
  Serious: No
  Sender: FDA-Public Use
  Company Number: None

PATIENT
  Age: 12 Year
  Sex: Male
  Weight: 35.3806 kg

DRUGS (2)
  1. LEVOCETIRIZINE DIHYDROCHLORIDE [Suspect]
     Indication: RHINITIS ALLERGIC
     Dosage: 5MG 1/2 BID PO
     Route: 048
     Dates: start: 20110806, end: 20110820
  2. XYZAL [Suspect]

REACTIONS (1)
  - CHEST PAIN [None]
